FAERS Safety Report 11869251 (Version 2)
Quarter: 2015Q4

REPORT INFORMATION
  Report Type: Report from Study
  Country: CA (occurrence: CA)
  Receive Date: 20151226
  Receipt Date: 20151231
  Transmission Date: 20160305
  Serious: Yes (Hospitalization, Other)
  Sender: FDA-Public Use
  Company Number: CA-BRISTOL-MYERS SQUIBB COMPANY-BMS-2015-089758

PATIENT
  Age: 71 Year
  Sex: Male
  Weight: 91 kg

DRUGS (7)
  1. NIVOLUMAB [Suspect]
     Active Substance: NIVOLUMAB
     Dosage: 279 MG, UNK
     Route: 065
     Dates: start: 20150930
  2. SALMON OIL [Concomitant]
     Active Substance: FISH OIL
     Indication: PRODUCT USED FOR UNKNOWN INDICATION
     Dosage: 2440 MG, UNK
     Route: 048
     Dates: start: 2000
  3. VITAMIN C [Concomitant]
     Active Substance: ASCORBIC ACID
     Indication: PRODUCT USED FOR UNKNOWN INDICATION
     Dosage: 2000 MG, UNK
     Route: 048
     Dates: start: 2005
  4. NIVOLUMAB [Suspect]
     Active Substance: NIVOLUMAB
     Indication: METASTATIC MALIGNANT MELANOMA
     Dosage: 278 MG, UNK
     Route: 065
     Dates: start: 20150902
  5. NIVOLUMAB [Suspect]
     Active Substance: NIVOLUMAB
     Dosage: 283 MG, UNK
     Route: 065
     Dates: start: 20151014
  6. NIVOLUMAB [Suspect]
     Active Substance: NIVOLUMAB
     Dosage: 278 MG, UNK
     Route: 065
     Dates: start: 20151209
  7. NIVOLUMAB [Suspect]
     Active Substance: NIVOLUMAB
     Dosage: 283 MG, UNK
     Route: 065
     Dates: start: 20150916

REACTIONS (1)
  - Seizure [Recovered/Resolved]

NARRATIVE: CASE EVENT DATE: 20151214
